FAERS Safety Report 4332868-1 (Version None)
Quarter: 2004Q1

REPORT INFORMATION
  Report Type: 
  Country: None (occurrence: None)
  Receive Date: 20040330
  Receipt Date: 20040315
  Transmission Date: 20041129
  Serious: Yes (Hospitalization)
  Sender: FDA-Public Use
  Company Number: 194248

PATIENT
  Age: 49 Year
  Sex: Female
  Weight: 92.0802 kg

DRUGS (2)
  1. AVONEX [Suspect]
     Indication: MULTIPLE SCLEROSIS
     Dosage: 30 MCG QW IM
     Route: 030
     Dates: start: 19960101, end: 20030501
  2. AVONEX [Suspect]
     Indication: MULTIPLE SCLEROSIS
     Dosage: 30 MCG QW IM
     Route: 030
     Dates: start: 20031217

REACTIONS (13)
  - BLADDER DISORDER [None]
  - CEREBROVASCULAR ACCIDENT [None]
  - CHEST DISCOMFORT [None]
  - CHILLS [None]
  - CONDITION AGGRAVATED [None]
  - HEART RATE INCREASED [None]
  - HYPERTENSION [None]
  - INFLUENZA LIKE ILLNESS [None]
  - MIGRAINE [None]
  - MULTIPLE SCLEROSIS [None]
  - OEDEMA [None]
  - PAIN [None]
  - VISION BLURRED [None]
